FAERS Safety Report 16263750 (Version 1)
Quarter: 2019Q2

REPORT INFORMATION
  Report Type: Spontaneous
  Country: US (occurrence: US)
  Receive Date: 20190502
  Receipt Date: 20190502
  Transmission Date: 20190711
  Serious: Yes (Hospitalization)
  Sender: FDA-Public Use
  Company Number: US-ELI_LILLY_AND_COMPANY-US201904015762

PATIENT
  Sex: Female

DRUGS (4)
  1. BASAGLAR [Suspect]
     Active Substance: INSULIN GLARGINE
     Dosage: 65 INTERNATIONAL UNIT, DAILY
  2. HUMALOG [Suspect]
     Active Substance: INSULIN LISPRO
     Dosage: 5-6 INTERNATIONAL UNIT, PRN
  3. HUMALOG [Suspect]
     Active Substance: INSULIN LISPRO
     Indication: TYPE 2 DIABETES MELLITUS
     Dosage: 5-6 INTERNATIONAL UNIT, PRN
     Dates: start: 2016
  4. BASAGLAR [Suspect]
     Active Substance: INSULIN GLARGINE
     Indication: TYPE 2 DIABETES MELLITUS
     Dosage: 65 INTERNATIONAL UNIT, DAILY
     Route: 065
     Dates: start: 2016

REACTIONS (2)
  - Pulmonary artery aneurysm [Recovering/Resolving]
  - Cardiac aneurysm [Recovering/Resolving]
